FAERS Safety Report 9590849 (Version 1)
Quarter: 2013Q4

REPORT INFORMATION
  Report Type: Spontaneous
  Country: US (occurrence: US)
  Receive Date: 20131003
  Receipt Date: 20131003
  Transmission Date: 20140711
  Serious: No
  Sender: FDA-Public Use
  Company Number: US-AMGEN-USASP2012074403

PATIENT
  Sex: Female
  Weight: 58.05 kg

DRUGS (7)
  1. ENBREL [Suspect]
     Indication: RHEUMATOID ARTHRITIS
     Dosage: 50 MG, QWK
     Route: 058
  2. PREDNISONE [Concomitant]
     Dosage: 1 MG, UNK
  3. VITAMIN C AND E [Concomitant]
     Dosage: UNK
  4. VITAMIN D                          /00107901/ [Concomitant]
     Dosage: 400 UNK, UNK
  5. VITAMIN B 12 [Concomitant]
     Dosage: 1000 MCG. UNK
     Route: 058
  6. CYTOMEL [Concomitant]
     Dosage: 5 MCG, UNK
  7. LEVOXYL [Concomitant]
     Dosage: 88 MCG, UNK

REACTIONS (2)
  - Tendon disorder [Unknown]
  - Musculoskeletal stiffness [Unknown]
